FAERS Safety Report 5638699-4 (Version None)
Quarter: 2008Q1

REPORT INFORMATION
  Report Type: 
  Country: None (occurrence: None)
  Receive Date: 20080226
  Receipt Date: 20071115
  Transmission Date: 20080703
  Serious: No
  Sender: FDA-Public Use
  Company Number: A0694774A

PATIENT
  Age: 43 Year
  Sex: Male

DRUGS (5)
  1. IMITREX [Suspect]
     Indication: MIGRAINE
     Dosage: 6MG AS REQUIRED
     Route: 058
  2. MIDRIN [Concomitant]
  3. VISTARIL [Concomitant]
  4. VALIUM [Concomitant]
  5. PERCOCET [Concomitant]

REACTIONS (1)
  - DRUG INEFFECTIVE [None]
